FAERS Safety Report 21500971 (Version 2)
Quarter: 2022Q4

REPORT INFORMATION
  Report Type: Other
  Country: GB (occurrence: GB)
  Receive Date: 20221025
  Receipt Date: 20221219
  Transmission Date: 20230113
  Serious: Yes (Other)
  Sender: FDA-Public Use
  Company Number: None

PATIENT

DRUGS (2)
  1. MONTELUKAST SODIUM [Suspect]
     Active Substance: MONTELUKAST SODIUM
     Indication: Respiratory symptom
     Dosage: 1 DOSAGE FORM, HS (ONE TO BE TAKEN AT NIGHT)
     Route: 065
     Dates: start: 20220726, end: 20220906
  2. MONTELUKAST SODIUM [Suspect]
     Active Substance: MONTELUKAST SODIUM
     Indication: Asthma

REACTIONS (4)
  - Depressed level of consciousness [Recovering/Resolving]
  - Speech disorder [Recovering/Resolving]
  - Feeling abnormal [Unknown]
  - Dry mouth [Recovering/Resolving]

NARRATIVE: CASE EVENT DATE: 20220803
